FAERS Safety Report 7375263-3 (Version None)
Quarter: 2011Q1

REPORT INFORMATION
  Report Type: 
  Country: None (occurrence: None)
  Receive Date: 20110325
  Receipt Date: 20110318
  Transmission Date: 20110831
  Serious: Yes (Other)
  Sender: FDA-Public Use
  Company Number: US-SANOFI-AVENTIS-2011SA012519

PATIENT
  Age: 48 Year
  Sex: Male
  Weight: 121 kg

DRUGS (15)
  1. ELOXATIN [Suspect]
     Indication: COLON CANCER
     Route: 041
     Dates: start: 20101208, end: 20101208
  2. ELOXATIN [Suspect]
     Route: 041
     Dates: start: 20110101, end: 20110101
  3. COMPAZINE [Concomitant]
     Indication: NAUSEA
     Dates: start: 20101208
  4. DECADRON [Concomitant]
     Indication: PROPHYLACTIC CHEMOTHERAPY
     Dosage: DAY 2 AND 3
     Route: 048
     Dates: start: 20101209
  5. ELOXATIN [Suspect]
     Route: 041
     Dates: start: 20110216, end: 20110216
  6. FLUOROURACIL [Suspect]
     Route: 042
     Dates: start: 20110101, end: 20110101
  7. FLUOROURACIL [Suspect]
     Route: 042
     Dates: start: 20110101, end: 20110101
  8. LEUCOVORIN [Suspect]
     Indication: COLON CANCER
     Route: 042
     Dates: start: 20101208, end: 20101208
  9. ELOXATIN [Suspect]
     Indication: ADENOCARCINOMA
     Route: 041
     Dates: start: 20101208, end: 20101208
  10. LEUCOVORIN [Suspect]
     Route: 042
     Dates: start: 20110101, end: 20110101
  11. FLUOROURACIL [Suspect]
     Indication: COLON CANCER
     Route: 042
     Dates: start: 20101208, end: 20101208
  12. EMEND [Concomitant]
     Indication: PROPHYLACTIC CHEMOTHERAPY
     Dosage: 120 MG DAY 1, 80 MG DAY 2 AND 3
     Dates: start: 20101208
  13. ELOXATIN [Suspect]
     Route: 041
     Dates: start: 20110101, end: 20110101
  14. ELOXATIN [Suspect]
     Route: 041
     Dates: start: 20110216, end: 20110216
  15. LEUCOVORIN [Suspect]
     Route: 042
     Dates: start: 20110101, end: 20110101

REACTIONS (6)
  - TREMOR [None]
  - DIARRHOEA [None]
  - PERIPHERAL MOTOR NEUROPATHY [None]
  - DYSGEUSIA [None]
  - COGWHEEL RIGIDITY [None]
  - HYPOAESTHESIA [None]
